FAERS Safety Report 7507993-4 (Version None)
Quarter: 2011Q2

REPORT INFORMATION
  Report Type: 
  Country: None (occurrence: None)
  Receive Date: 20110519
  Receipt Date: 20110504
  Transmission Date: 20111010
  Serious: Yes (Death, Hospitalization)
  Sender: FDA-Public Use
  Company Number: 2011MA005044

PATIENT
  Age: 61 Year
  Sex: Male

DRUGS (4)
  1. GEMCITABINE [Concomitant]
  2. CARBOPLATIN [Concomitant]
  3. PACLITAXEL [Suspect]
     Indication: NEOPLASM MALIGNANT
     Dosage: 200 MG/MG2
  4. TRASTUZUMAB [Concomitant]

REACTIONS (9)
  - UROSEPSIS [None]
  - MENINGITIS [None]
  - NERVE COMPRESSION [None]
  - PARAESTHESIA [None]
  - AXONAL NEUROPATHY [None]
  - LOSS OF PROPRIOCEPTION [None]
  - DEMYELINATION [None]
  - METASTATIC NEOPLASM [None]
  - DISEASE RECURRENCE [None]
